FAERS Safety Report 9872989 (Version 3)
Quarter: 2015Q1

REPORT INFORMATION
  Report Type: Spontaneous
  Country: US (occurrence: US)
  Receive Date: 20140206
  Receipt Date: 20150208
  Transmission Date: 20150721
  Serious: No
  Sender: FDA-Public Use
  Company Number: US-ACORDA-ACO_21468_2011

PATIENT
  Sex: Female
  Weight: 55.78 kg

DRUGS (10)
  1. AMPYRA [Suspect]
     Active Substance: DALFAMPRIDINE
     Dosage: 10 MG, QD
     Dates: start: 20110331
  2. CIPRO                              /00697201/ [Suspect]
     Active Substance: CIPROFLOXACIN
     Indication: URINARY TRACT INFECTION
     Dosage: UNK
     Dates: start: 20110331, end: 20110402
  3. BACLOFEN. [Concomitant]
     Active Substance: BACLOFEN
     Dosage: UNK
     Dates: start: 2006
  4. AMPYRA [Suspect]
     Active Substance: DALFAMPRIDINE
     Indication: BALANCE DISORDER
     Dosage: 10 MG, QD
     Route: 048
     Dates: start: 201011
  5. AMPYRA [Suspect]
     Active Substance: DALFAMPRIDINE
     Dosage: 10 MG, Q 12 HRS
     Route: 048
  6. MACROBID [Concomitant]
     Active Substance: NITROFURANTOIN\NITROFURANTOIN MONOHYDRATE
     Indication: PROPHYLAXIS URINARY TRACT INFECTION
     Dosage: 1 CAPSULE PRIOR TO SEXUAL INTERCOURSE, UNK
     Route: 065
     Dates: start: 201309
  7. VENLAFAXINE [Concomitant]
     Active Substance: VENLAFAXINE HYDROCHLORIDE
     Dosage: UNK
     Dates: start: 2009
  8. AMPYRA [Suspect]
     Active Substance: DALFAMPRIDINE
     Dosage: 10 MG, BID
     Route: 048
     Dates: end: 201103
  9. ZANAFLEX [Concomitant]
     Active Substance: TIZANIDINE HYDROCHLORIDE
     Indication: PRODUCT USED FOR UNKNOWN INDICATION
     Dosage: UNK
     Dates: start: 2006
  10. AMPYRA [Suspect]
     Active Substance: DALFAMPRIDINE
     Indication: GAIT DISTURBANCE
     Dosage: 10 MG, BID
     Route: 048
     Dates: start: 2010, end: 2010

REACTIONS (11)
  - Fatigue [Unknown]
  - Inappropriate schedule of drug administration [Unknown]
  - Presyncope [Recovered/Resolved]
  - Drug effect decreased [Unknown]
  - Stress [Unknown]
  - Feeling hot [Recovered/Resolved]
  - Tremor [Recovered/Resolved]
  - Urinary tract infection [Recovered/Resolved]
  - Insomnia [Recovered/Resolved]
  - Multiple sclerosis [Unknown]
  - Back pain [Recovering/Resolving]

NARRATIVE: CASE EVENT DATE: 2010
